FAERS Safety Report 7057160-6 (Version None)
Quarter: 2010Q4

REPORT INFORMATION
  Report Type: 
  Country: None (occurrence: None)
  Receive Date: 20101022
  Receipt Date: 20101012
  Transmission Date: 20110411
  Serious: Yes (Disabling)
  Sender: FDA-Public Use
  Company Number: PHHY2010CL68264

PATIENT
  Age: 77 Year
  Sex: Female

DRUGS (6)
  1. ACLASTA [Suspect]
     Dosage: 5 MG
  2. CALCIMAX [Concomitant]
  3. URSO FALK [Concomitant]
  4. PREDNISONE [Concomitant]
  5. GLUCOSAMINE [Concomitant]
  6. LEXAPRO [Concomitant]

REACTIONS (1)
  - GAIT DISTURBANCE [None]
